FAERS Safety Report 23255491 (Version 2)
Quarter: 2023Q4

REPORT INFORMATION
  Report Type: Spontaneous
  Country: CN (occurrence: CN)
  Receive Date: 20231203
  Receipt Date: 20231207
  Transmission Date: 20240110
  Serious: Yes (Hospitalization, Other)
  Sender: FDA-Public Use
  Company Number: CN-002147023-NVSC2023CN254061

PATIENT
  Age: 71 Year
  Sex: Female
  Weight: 57 kg

DRUGS (4)
  1. SECUKINUMAB [Suspect]
     Active Substance: SECUKINUMAB
     Indication: Psoriasis
     Dosage: 300 MG, QW
     Route: 058
     Dates: start: 20230528
  2. SECUKINUMAB [Suspect]
     Active Substance: SECUKINUMAB
     Dosage: 300 MG, QW
     Route: 058
  3. SECUKINUMAB [Suspect]
     Active Substance: SECUKINUMAB
     Dosage: 300 MG, QW
     Route: 058
  4. SECUKINUMAB [Suspect]
     Active Substance: SECUKINUMAB
     Dosage: 300 MG, QW
     Route: 058
     Dates: start: 20230628, end: 20230628

REACTIONS (32)
  - Interstitial lung disease [Unknown]
  - Anaemia [Unknown]
  - Dizziness [Unknown]
  - Weight decreased [Unknown]
  - Productive cough [Unknown]
  - Abdominal distension [Unknown]
  - Muscle enzyme increased [Unknown]
  - Blood pressure increased [Unknown]
  - Blood albumin decreased [Unknown]
  - Globulins increased [Unknown]
  - Tri-iodothyronine free decreased [Unknown]
  - Fibrin D dimer increased [Unknown]
  - Hepatic steatosis [Unknown]
  - Cerebral small vessel ischaemic disease [Unknown]
  - Cerebral atrophy [Unknown]
  - Procalcitonin increased [Unknown]
  - Thyroid mass [Unknown]
  - Hepatic cyst [Unknown]
  - Pulmonary oedema [Unknown]
  - Hepatic lesion [Unknown]
  - Lacunar stroke [Unknown]
  - Aortic arteriosclerosis [Unknown]
  - Carotid intima-media thickness increased [Unknown]
  - Vascular resistance systemic increased [Unknown]
  - Vertebrobasilar dolichoectasia [Unknown]
  - Aortic valve incompetence [Unknown]
  - Mitral valve incompetence [Unknown]
  - Tricuspid valve incompetence [Unknown]
  - Electrocardiogram low voltage [Unknown]
  - Electrocardiogram Q wave abnormal [Unknown]
  - Headache [Unknown]
  - Psoriatic arthropathy [Unknown]

NARRATIVE: CASE EVENT DATE: 20231119
